FAERS Safety Report 6425471-0 (Version None)
Quarter: 2009Q4

REPORT INFORMATION
  Report Type: 
  Country: None (occurrence: None)
  Receive Date: 20091103
  Receipt Date: 20091026
  Transmission Date: 20100525
  Serious: Yes (Other)
  Sender: FDA-Public Use
  Company Number: US-PFIZER INC-2009168968

PATIENT
  Sex: Male
  Weight: 99.79 kg

DRUGS (15)
  1. VIAGRA [Suspect]
     Indication: ERECTILE DYSFUNCTION
     Dosage: 100 MG, AS NEEDED
     Route: 048
  2. VIAGRA [Suspect]
     Dosage: UNK
  3. HYDROCHLOROTHIAZIDE [Concomitant]
     Indication: HYPERTENSION
     Dosage: 25 MG, 1X/DAY
  4. AMLODIPINE [Concomitant]
     Indication: HYPERTENSION
     Dosage: 10 MG, 1X/DAY
  5. LISINOPRIL [Concomitant]
     Indication: HYPERTENSION
     Dosage: 40 MG, 1X/DAY
  6. ANDROGEL [Concomitant]
     Dosage: 5 G, 1X/DAY
     Route: 061
     Dates: start: 20090101
  7. SEROQUEL [Concomitant]
     Indication: DEPRESSION
     Dosage: 50 MG, 1X/DAY
     Dates: start: 20060101
  8. EFFEXOR [Concomitant]
     Dosage: 150 MG, 1X/DAY
     Route: 048
     Dates: start: 20080101
  9. ALPRAZOLAM [Concomitant]
     Indication: INSOMNIA
     Dosage: 0.5 MG, 3X/DAY
  10. CABERGOLINE [Concomitant]
     Dosage: 0.5 MG, UNK
     Route: 048
  11. HYOSCYAMINE [Concomitant]
     Dosage: 1.25 MG, 2X/DAY
  12. CIMETIDINE [Concomitant]
     Dosage: 800 MG, 2X/DAY
  13. ASCORBIC ACID [Concomitant]
     Dosage: 500 MG, 1X/DAY
     Route: 048
  14. VITAMIN D [Concomitant]
     Dosage: 1000 IU, 1X/DAY
  15. MULTI-VITAMINS [Concomitant]
     Dosage: UNK

REACTIONS (1)
  - LOSS OF CONSCIOUSNESS [None]
